FAERS Safety Report 16192721 (Version 2)
Quarter: 2019Q2

REPORT INFORMATION
  Report Type: Spontaneous
  Country: ES (occurrence: ES)
  Receive Date: 20190412
  Receipt Date: 20190412
  Transmission Date: 20190711
  Serious: Yes (Other)
  Sender: FDA-Public Use
  Company Number: PHHY2019ES083239

PATIENT
  Age: 54 Year
  Sex: Male

DRUGS (22)
  1. FENTANYL. [Suspect]
     Active Substance: FENTANYL
     Dosage: 100 UG, EVERY 3 DAYS
     Route: 065
  2. FENTANYL. [Suspect]
     Active Substance: FENTANYL
     Dosage: 2 TO 3 DF, QD (NASAL DROP AND NASAL SPRAY)
     Route: 045
  3. DEXAMETHASONE. [Concomitant]
     Active Substance: DEXAMETHASONE
     Indication: PRODUCT USED FOR UNKNOWN INDICATION
     Dosage: UNK
     Route: 065
  4. ZOLEDRONATE [Suspect]
     Active Substance: ZOLEDRONIC ACID
     Indication: CANCER PAIN
     Dosage: 1 OT, Q4W
     Route: 065
  5. BACLOFEN. [Suspect]
     Active Substance: BACLOFEN
     Indication: CANCER PAIN
     Dosage: 10 MG, Q12H
     Route: 065
  6. DULOXETINE. [Suspect]
     Active Substance: DULOXETINE
     Indication: CANCER PAIN
     Dosage: 60 MG, QD
     Route: 065
  7. FENTANYL. [Suspect]
     Active Substance: FENTANYL
     Dosage: 100 OT, PRN
     Route: 045
  8. FENTANYL. [Suspect]
     Active Substance: FENTANYL
     Indication: CANCER PAIN
     Dosage: 75 OT, EVERY 3 DAYS
     Route: 065
  9. PREGABALIN. [Suspect]
     Active Substance: PREGABALIN
     Indication: CANCER PAIN
     Dosage: 150 OT, Q12H
     Route: 065
  10. FENTANYL. [Suspect]
     Active Substance: FENTANYL
     Indication: BREAKTHROUGH PAIN
     Dosage: UNK
     Route: 045
  11. FENTANYL. [Suspect]
     Active Substance: FENTANYL
     Dosage: 800 UG, UNK
     Route: 045
  12. PEMETREXED. [Concomitant]
     Active Substance: PEMETREXED
     Indication: METASTASES TO BONE
  13. CISPLATINE [Concomitant]
     Active Substance: CISPLATIN
     Indication: LUNG ADENOCARCINOMA STAGE IV
     Dosage: UNK
     Route: 016
  14. CISPLATINE [Concomitant]
     Active Substance: CISPLATIN
     Indication: METASTASES TO BONE
  15. FENTANYL. [Suspect]
     Active Substance: FENTANYL
     Dosage: 400 UG, QD ((REQUIRING 2 DOSES DAILY)
     Route: 045
  16. NAPROXEN. [Suspect]
     Active Substance: NAPROXEN
     Indication: CANCER PAIN
     Dosage: 500 OT, Q12H
     Route: 065
  17. MEGESTROL ACETATE. [Concomitant]
     Active Substance: MEGESTROL ACETATE
     Indication: PRODUCT USED FOR UNKNOWN INDICATION
     Dosage: 160 MG, Q8H
     Route: 065
  18. OXYCODONE HYDROCHLORIDE. [Suspect]
     Active Substance: OXYCODONE HYDROCHLORIDE
     Indication: CANCER PAIN
     Dosage: 10 MG, Q8H
     Route: 065
  19. KETAMINE [Suspect]
     Active Substance: KETAMINE
     Indication: CANCER PAIN
     Dosage: UNK
     Route: 065
  20. PEMETREXED. [Concomitant]
     Active Substance: PEMETREXED
     Indication: LUNG ADENOCARCINOMA STAGE IV
     Dosage: UNKNOWN
     Route: 065
  21. OMEPRAZOLE. [Suspect]
     Active Substance: OMEPRAZOLE
     Indication: CANCER PAIN
     Dosage: 20 OT, QD
     Route: 065
  22. PAROXETINE. [Concomitant]
     Active Substance: PAROXETINE
     Indication: PRODUCT USED FOR UNKNOWN INDICATION
     Dosage: 20 MG, QD (AT NIGHT)
     Route: 065

REACTIONS (15)
  - Dysphagia [Unknown]
  - Anxiety [Unknown]
  - Constipation [Unknown]
  - Sleep apnoea syndrome [Unknown]
  - Insomnia [Unknown]
  - Somnolence [Unknown]
  - Decreased appetite [Recovering/Resolving]
  - Pulmonary embolism [Unknown]
  - Dyspnoea [Unknown]
  - Cognitive disorder [Unknown]
  - Vomiting [Unknown]
  - Fatigue [Unknown]
  - Depression [Recovering/Resolving]
  - Urinary retention [Unknown]
  - Delirium [Unknown]
